FAERS Safety Report 5145479-5 (Version None)
Quarter: 2006Q4

REPORT INFORMATION
  Report Type: 
  Country: None (occurrence: None)
  Receive Date: 20061101
  Receipt Date: 20061017
  Transmission Date: 20070319
  Serious: Yes (Hospitalization)
  Sender: FDA-Public Use
  Company Number: US-2006-011752

PATIENT
  Age: 56 Year
  Sex: Female
  Weight: 63 kg

DRUGS (10)
  1. BETASERON [Suspect]
     Indication: SECONDARY PROGRESSIVE MULTIPLE SCLEROSIS
     Dosage: SEE IMAGE, SUBCUTANEOUS
     Route: 058
     Dates: start: 19890101, end: 20040101
  2. BETASERON [Suspect]
     Indication: SECONDARY PROGRESSIVE MULTIPLE SCLEROSIS
     Dosage: SEE IMAGE, SUBCUTANEOUS
     Route: 058
     Dates: start: 20040501, end: 20060310
  3. LYRICA [Suspect]
     Indication: TRIGEMINAL NEURALGIA
     Dosage: 50 MG, 2X/DAY
     Dates: start: 20060126, end: 20060301
  4. SAROTEN [Concomitant]
  5. SEA-LEGS (MECLOZINE HYDROCHLORIDE) [Concomitant]
  6. BACLOFEN [Concomitant]
  7. DURAGESIC-100 [Concomitant]
  8. REQUIP [Concomitant]
  9. NEURONTIN [Concomitant]
  10. PERCOCET [Concomitant]

REACTIONS (9)
  - CONTUSION [None]
  - CYSTITIS [None]
  - DEEP VEIN THROMBOSIS [None]
  - HAEMATOCRIT DECREASED [None]
  - HAEMOGLOBIN DECREASED [None]
  - HERPES ZOSTER [None]
  - SECONDARY PROGRESSIVE MULTIPLE SCLEROSIS [None]
  - THROMBOCYTOPENIA [None]
  - WHITE BLOOD CELL COUNT DECREASED [None]
